FAERS Safety Report 9130147 (Version 1)
Quarter: 2013Q1

REPORT INFORMATION
  Report Type: Spontaneous
  Country: US (occurrence: US)
  Receive Date: 20130228
  Receipt Date: 20130228
  Transmission Date: 20140127
  Serious: No
  Sender: FDA-Public Use
  Company Number: US-009507513-1302USA012892

PATIENT
  Sex: Female

DRUGS (2)
  1. PEGINTRON [Suspect]
     Indication: HEPATITIS C
     Dosage: UNK, REDIPEN
     Dates: start: 20120323, end: 20130215
  2. RIBAVIRIN [Suspect]
     Indication: HEPATITIS C
     Dosage: UNK
     Route: 048
     Dates: start: 20120323, end: 20130222

REACTIONS (11)
  - Alopecia [Unknown]
  - Malaise [Unknown]
  - Weight decreased [Unknown]
  - Influenza like illness [Unknown]
  - Leukopenia [Unknown]
  - White blood cell count decreased [Unknown]
  - Thrombocytopenia [Unknown]
  - Platelet count decreased [Unknown]
  - Anaemia [Unknown]
  - Haemoglobin decreased [Unknown]
  - Fatigue [Unknown]
